FAERS Safety Report 6483378-7 (Version None)
Quarter: 2009Q4

REPORT INFORMATION
  Report Type: 
  Country: None (occurrence: None)
  Receive Date: 20091209
  Receipt Date: 20091127
  Transmission Date: 20100525
  Serious: Yes (Hospitalization)
  Sender: FDA-Public Use
  Company Number: US-B.I. PHARMACEUTICALS,INC./RIDGEFIELD-2009-DE-07365GD

PATIENT
  Age: 62 Year
  Sex: Female

DRUGS (12)
  1. PREDNISONE [Suspect]
     Indication: COUGH
  2. PREDNISONE [Suspect]
     Indication: UPPER RESPIRATORY TRACT INFECTION
  3. IPRATROPIUM BROMIDE [Suspect]
     Indication: WHEEZING
  4. IPRATROPIUM BROMIDE [Suspect]
     Indication: COUGH
  5. IPRATROPIUM BROMIDE [Suspect]
     Indication: DYSPNOEA
  6. METHYLPREDNISOLONE [Suspect]
     Indication: WHEEZING
     Dosage: 120 MG - 240 MG
  7. METHYLPREDNISOLONE [Suspect]
     Indication: COUGH
  8. METHYLPREDNISOLONE [Suspect]
     Indication: DYSPNOEA
  9. ALBUTEROL [Suspect]
     Indication: WHEEZING
  10. ALBUTEROL [Suspect]
     Indication: COUGH
  11. ALBUTEROL [Suspect]
     Indication: DYSPNOEA
  12. ANTIBIOTICS [Concomitant]
     Indication: UPPER RESPIRATORY TRACT INFECTION

REACTIONS (1)
  - TRACHEOMALACIA [None]
